FAERS Safety Report 4459725-4 (Version None)
Quarter: 2004Q3

REPORT INFORMATION
  Report Type: 
  Country: None (occurrence: None)
  Receive Date: 20040922
  Receipt Date: 20040922
  Transmission Date: 20050211
  Serious: Yes (Hospitalization)
  Sender: FDA-Public Use
  Company Number: None

PATIENT
  Sex: Female

DRUGS (11)
  1. CPT-11 (IRINOTECAN) 350MG/ M2 [Suspect]
     Indication: METASTASES TO CENTRAL NERVOUS SYSTEM
     Dosage: 350MG/M2 EVERY 3 WKS
     Dates: start: 20040909
  2. CPT-11 (IRINOTECAN) 350MG/ M2 [Suspect]
     Indication: NON-SMALL CELL LUNG CANCER
     Dosage: 350MG/M2 EVERY 3 WKS
     Dates: start: 20040909
  3. DEMEROL [Concomitant]
  4. ZOFRAN [Concomitant]
  5. GLUCOPHAGE [Concomitant]
  6. LOPERAMIDE HCL [Concomitant]
  7. DEXAMETHASONE [Concomitant]
  8. ZOLOFT [Concomitant]
  9. NEXIUM [Concomitant]
  10. COMPAZINE [Concomitant]
  11. AMBIEN [Concomitant]

REACTIONS (7)
  - ASTHENIA [None]
  - BLOOD GLUCOSE INCREASED [None]
  - BLOOD SODIUM DECREASED [None]
  - DEHYDRATION [None]
  - DIARRHOEA [None]
  - NEUTROPENIA [None]
  - VOMITING [None]
